FAERS Safety Report 11803167 (Version 1)
Quarter: 2015Q4

REPORT INFORMATION
  Report Type: Spontaneous
  Country: US (occurrence: US)
  Receive Date: 20151204
  Receipt Date: 20151204
  Transmission Date: 20160305
  Serious: Yes (Hospitalization, Other)
  Sender: FDA-Public Use
  Company Number: US-MEDTRONIC-1045067

PATIENT
  Age: 56 Year
  Sex: Male

DRUGS (22)
  1. VITAMIN C [Concomitant]
     Active Substance: ASCORBIC ACID
     Route: 050
  2. PROMOD [Concomitant]
     Route: 050
  3. TABAVITE [Concomitant]
     Route: 050
  4. MILK OF MAGNESIA [Concomitant]
     Active Substance: MAGNESIUM HYDROXIDE
     Route: 050
  5. COLACE [Concomitant]
     Active Substance: DOCUSATE SODIUM
     Route: 050
  6. TYLENOL [Concomitant]
     Active Substance: ACETAMINOPHEN
     Route: 050
  7. BACLOFEN. [Concomitant]
     Active Substance: BACLOFEN
     Route: 050
  8. DULCOLAX NOS [Concomitant]
     Active Substance: BISACODYL OR DOCUSATE SODIUM
     Route: 054
  9. MI-ACID REGULAR STRENGTH [Concomitant]
     Active Substance: ALUMINUM HYDROXIDE\DIMETHICONE\MAGNESIUM HYDROXIDE
     Route: 050
  10. UTI STAT [Concomitant]
     Route: 050
  11. LORATIDINE [Concomitant]
     Active Substance: LORATADINE
     Route: 050
  12. SORBITOL. [Concomitant]
     Active Substance: SORBITOL
     Route: 050
  13. PEPCID [Concomitant]
     Active Substance: FAMOTIDINE
     Route: 050
  14. DUONEB [Concomitant]
     Active Substance: ALBUTEROL SULFATE\IPRATROPIUM BROMIDE
  15. TYLENOL WITH CODEINE [Concomitant]
     Active Substance: ACETAMINOPHEN\CODEINE PHOSPHATE
     Route: 050
  16. BACLOFEN INTRATHECAL [Suspect]
     Active Substance: BACLOFEN
     Indication: MUSCLE SPASTICITY
     Route: 037
  17. EFFEXOR [Concomitant]
     Active Substance: VENLAFAXINE HYDROCHLORIDE
     Route: 050
  18. SEROQUEL [Concomitant]
     Active Substance: QUETIAPINE FUMARATE
     Route: 050
  19. IMODIUM [Concomitant]
     Active Substance: LOPERAMIDE HYDROCHLORIDE
  20. CHAMOSYN [Concomitant]
     Active Substance: MENTHOL\ZINC OXIDE
     Route: 061
  21. NITROSTAT [Concomitant]
     Active Substance: NITROGLYCERIN
     Route: 060
  22. EAR DROPS EARWAX REMOVAL AID [Concomitant]
     Active Substance: CARBAMIDE PEROXIDE
     Route: 001

REACTIONS (5)
  - Implant site extravasation [Unknown]
  - Purulent discharge [Unknown]
  - Implant site infection [Unknown]
  - Post procedural infection [Unknown]
  - Systemic inflammatory response syndrome [Unknown]

NARRATIVE: CASE EVENT DATE: 20151105
